FAERS Safety Report 10360742 (Version 1)
Quarter: 2014Q3

REPORT INFORMATION
  Report Type: Spontaneous
  Country: US (occurrence: None)
  Receive Date: 20140731
  Receipt Date: 20140731
  Transmission Date: 20150326
  Serious: Yes (Hospitalization, Other)
  Sender: FDA-Public Use
  Company Number: AEGR000618

PATIENT

DRUGS (1)
  1. JUXTAPID [Suspect]
     Active Substance: LOMITAPIDE MESYLATE
     Indication: PRODUCT USED FOR UNKNOWN INDICATION
     Dates: start: 20140617, end: 20140716

REACTIONS (4)
  - Product used for unknown indication [None]
  - Cerebrovascular accident [None]
  - Hypotension [None]
  - Deep vein thrombosis [None]

NARRATIVE: CASE EVENT DATE: 2014
